FAERS Safety Report 8576249-3 (Version None)
Quarter: 2012Q3

REPORT INFORMATION
  Report Type: 
  Country: None (occurrence: None)
  Receive Date: 20120724
  Receipt Date: 20120709
  Transmission Date: 20120928
  Serious: Yes (Life-Threatening, Hospitalization, Other)
  Sender: FDA-Public Use
  Company Number: 2011MPI00123

PATIENT
  Age: 41 Year
  Sex: Male
  Weight: 108.5 kg

DRUGS (7)
  1. PREDNISOLONE ACETATE [Concomitant]
  2. PANTOPRAZOLE [Concomitant]
  3. URSODIOL [Concomitant]
  4. PRAVASTATIN [Concomitant]
  5. TORSEMIDE [Concomitant]
  6. BRENTUXIMAB VEDOTIN (BRENTUXIMAB VEDOTIN) INJECTION [Suspect]
     Indication: HODGKIN'S DISEASE
     Dosage: 180 MG, UNK, INTRAVENOUS
     Route: 042
     Dates: start: 20110518, end: 20110608
  7. HYDROCHLOROTHIAZIDE [Concomitant]

REACTIONS (44)
  - SYSTEMIC INFLAMMATORY RESPONSE SYNDROME [None]
  - BLOOD LACTATE DEHYDROGENASE INCREASED [None]
  - BLOOD CHLORIDE DECREASED [None]
  - BLOOD CALCIUM DECREASED [None]
  - JAUNDICE [None]
  - GAMMA-GLUTAMYLTRANSFERASE INCREASED [None]
  - AMYLASE DECREASED [None]
  - HAEMODIALYSIS [None]
  - HYPOKALAEMIA [None]
  - HYPOTONIA [None]
  - PROTHROMBIN TIME PROLONGED [None]
  - ANTITHROMBIN III DECREASED [None]
  - BLOOD MAGNESIUM DECREASED [None]
  - ASPARTATE AMINOTRANSFERASE INCREASED [None]
  - RESPIRATORY FAILURE [None]
  - ACUTE GRAFT VERSUS HOST DISEASE IN LIVER [None]
  - DIARRHOEA [None]
  - NEPHROPATHY [None]
  - ALANINE AMINOTRANSFERASE INCREASED [None]
  - HEPATIC CIRRHOSIS [None]
  - SEPTIC SHOCK [None]
  - ANTIBIOTIC RESISTANT STAPHYLOCOCCUS TEST POSITIVE [None]
  - HYPOAESTHESIA [None]
  - TACHYARRHYTHMIA [None]
  - HYPONATRAEMIA [None]
  - CHOLESTASIS [None]
  - STENOTROPHOMONAS TEST POSITIVE [None]
  - APPARENT LIFE THREATENING EVENT [None]
  - PLATELET COUNT DECREASED [None]
  - BLOOD BILIRUBIN INCREASED [None]
  - HEPATIC STEATOSIS [None]
  - RENAL FAILURE ACUTE [None]
  - OPPORTUNISTIC INFECTION [None]
  - PERICARDIAL EFFUSION [None]
  - LIVER DISORDER [None]
  - SPLENOMEGALY [None]
  - CHOLANGITIS SCLEROSING [None]
  - HEPATITIS [None]
  - CHOLANGITIS [None]
  - KLEBSIELLA BACTERAEMIA [None]
  - ASTHENIA [None]
  - MUSCLE SPASMS [None]
  - MYOPATHY [None]
  - PROTEIN TOTAL DECREASED [None]
